FAERS Safety Report 4339117-9 (Version None)
Quarter: 2004Q1

REPORT INFORMATION
  Report Type: 
  Country: None (occurrence: None)
  Receive Date: 20040319
  Receipt Date: 20040211
  Transmission Date: 20041129
  Serious: No
  Sender: FDA-Public Use
  Company Number: US-JNJFOC-20040203330

PATIENT
  Age: 19 Year
  Sex: Female
  Weight: 70.3075 kg

DRUGS (1)
  1. ORTHO EVRA [Suspect]
     Indication: CONTRACEPTION
     Dosage: 1 DOSE (S), 3 IN 4 WEEK, TRANSDERMAL
     Route: 062
     Dates: start: 20040210, end: 20040211

REACTIONS (7)
  - ABDOMINAL PAIN [None]
  - BREAST TENDERNESS [None]
  - CHEST PAIN [None]
  - DYSGEUSIA [None]
  - HEADACHE [None]
  - MENORRHAGIA [None]
  - NAUSEA [None]
